FAERS Safety Report 7948879-0 (Version None)
Quarter: 2011Q4

REPORT INFORMATION
  Report Type: 
  Country: None (occurrence: None)
  Receive Date: 20111130
  Receipt Date: 20111121
  Transmission Date: 20120403
  Serious: Yes (Hospitalization)
  Sender: FDA-Public Use
  Company Number: CA-PFIZER INC-2011289835

PATIENT
  Age: 78 Year
  Sex: Male

DRUGS (9)
  1. PANTOPRAZOLE SODIUM [Suspect]
     Indication: GASTROINTESTINAL DISORDER
     Dosage: 40 MG, 1X/DAY
     Route: 065
     Dates: start: 20030101, end: 20110101
  2. NORVASC [Concomitant]
  3. BENADRYL [Concomitant]
  4. ALDCTONE [Concomitant]
     Dosage: 50 MG, 2X/DAY
  5. LIPITOR [Concomitant]
  6. GLUCOPHAGE [Concomitant]
     Dosage: 1 G, 2X/DAY
  7. NASONEX [Concomitant]
  8. ANDROGEL [Concomitant]
     Dosage: 1 PERCENT, UNK
  9. DESLORATADINE [Concomitant]
     Dosage: 1 DOSAGE FORMS,IN THE MORNING

REACTIONS (3)
  - BLOOD POTASSIUM DECREASED [None]
  - BLOOD CALCIUM DECREASED [None]
  - BLOOD MAGNESIUM DECREASED [None]
